FAERS Safety Report 6273890-8 (Version None)
Quarter: 2009Q3

REPORT INFORMATION
  Report Type: 
  Country: None (occurrence: None)
  Receive Date: 20090716
  Receipt Date: 20090709
  Transmission Date: 20100115
  Serious: Yes (Other)
  Sender: FDA-Public Use
  Company Number: 2007AG1051

PATIENT
  Age: 75 Year
  Sex: Female

DRUGS (6)
  1. SIMVASTATIN [Suspect]
     Indication: HYPERCHOLESTEROLAEMIA
     Dosage: 40 MG/DAY, ORAL
     Route: 048
     Dates: start: 20071015, end: 20071115
  2. LIPITOR [Concomitant]
  3. EMCONCOR [Concomitant]
  4. IMOVANE [Concomitant]
  5. TRIATEC [Concomitant]
  6. LEVOTHYROXINE SODIUM [Concomitant]

REACTIONS (5)
  - CONFUSIONAL STATE [None]
  - DIARRHOEA [None]
  - HEADACHE [None]
  - MUSCULAR WEAKNESS [None]
  - NAUSEA [None]
